FAERS Safety Report 21874645 (Version 1)
Quarter: 2023Q1

REPORT INFORMATION
  Report Type: Spontaneous
  Country: GB (occurrence: None)
  Receive Date: 20230117
  Receipt Date: 20230117
  Transmission Date: 20230417
  Serious: Yes (Other)
  Sender: FDA-Public Use
  Company Number: 2023A008095

PATIENT
  Sex: Female

DRUGS (1)
  1. QUETIAPINE [Suspect]
     Active Substance: QUETIAPINE
     Indication: Product used for unknown indication
     Route: 065
     Dates: start: 20221026

REACTIONS (6)
  - Depressed level of consciousness [Unknown]
  - Dysstasia [Unknown]
  - Dysarthria [Unknown]
  - Somnolence [Unknown]
  - Wrong product administered [Unknown]
  - Product dispensing error [Unknown]
